FAERS Safety Report 9416787 (Version 1)
Quarter: 2013Q3

REPORT INFORMATION
  Report Type: Spontaneous
  Country: US (occurrence: US)
  Receive Date: 20130724
  Receipt Date: 20130724
  Transmission Date: 20140515
  Serious: No
  Sender: FDA-Public Use
  Company Number: US-GALDERMA-US13000287

PATIENT
  Age: 52 Year
  Sex: Female

DRUGS (3)
  1. ORACEA (DOXYCYCLINE, USP) CAPSULES 40 MG [Suspect]
     Indication: ROSACEA
     Route: 048
     Dates: start: 201210, end: 201211
  2. CALTRATE PLUS D [Concomitant]
     Indication: MINERAL SUPPLEMENTATION
  3. MULTIPLE VITAMIN [Concomitant]
     Indication: SUPPLEMENTATION THERAPY
     Route: 048

REACTIONS (7)
  - Toothache [Recovered/Resolved]
  - Joint crepitation [Not Recovered/Not Resolved]
  - Bruxism [Not Recovered/Not Resolved]
  - Condition aggravated [Unknown]
  - Jaw disorder [Unknown]
  - Angiopathy [Unknown]
  - Bone loss [Unknown]
